FAERS Safety Report 5804680-5 (Version None)
Quarter: 2008Q3

REPORT INFORMATION
  Report Type: 
  Country: None (occurrence: None)
  Receive Date: 20080709
  Receipt Date: 20080630
  Transmission Date: 20090109
  Serious: Yes (Hospitalization, Other)
  Sender: FDA-Public Use
  Company Number: DK-BAYER-200821401GPV

PATIENT
  Age: 56 Year
  Sex: Female

DRUGS (8)
  1. CIPROFLOXACIN HCL [Suspect]
     Indication: PNEUMONIA
     Route: 065
     Dates: start: 20050104, end: 20050104
  2. ZINACEF [Suspect]
     Indication: PNEUMONIA
     Route: 065
     Dates: start: 20050104, end: 20050107
  3. CETIRIZIN [Concomitant]
     Indication: HYPERSENSITIVITY
     Route: 065
     Dates: start: 20050106
  4. ESCITALOPRAM [Concomitant]
     Indication: DEPRESSION
     Route: 048
  5. FURIX [Concomitant]
     Indication: PULMONARY OEDEMA
     Route: 048
     Dates: start: 20050105
  6. KALEORID [Concomitant]
     Indication: PULMONARY OEDEMA
     Route: 048
     Dates: start: 20050105
  7. PANTOPRAZOLE SODIUM [Concomitant]
     Indication: DRUG USE FOR UNKNOWN INDICATION
     Route: 065
  8. LOSEC I.V. [Concomitant]
     Indication: DRUG USE FOR UNKNOWN INDICATION
     Route: 065

REACTIONS (11)
  - ALVEOLITIS ALLERGIC [None]
  - GASTRIC HAEMORRHAGE [None]
  - HAEMATEMESIS [None]
  - HAEMATOCHEZIA [None]
  - INTERSTITIAL LUNG DISEASE [None]
  - PRURITUS [None]
  - PULMONARY FUNCTION TEST DECREASED [None]
  - RASH [None]
  - RASH ERYTHEMATOUS [None]
  - THROMBOCYTOPENIA [None]
  - VASCULITIS [None]
